FAERS Safety Report 15423741 (Version 1)
Quarter: 2018Q3

REPORT INFORMATION
  Report Type: Spontaneous
  Country: US (occurrence: US)
  Receive Date: 20180925
  Receipt Date: 20180925
  Transmission Date: 20181010
  Serious: No
  Sender: FDA-Public Use
  Company Number: US-DRREDDYS-USA/USA/18/0098038

PATIENT
  Sex: Female

DRUGS (1)
  1. AUGMENTIN [Suspect]
     Active Substance: AMOXICILLIN\CLAVULANATE POTASSIUM
     Indication: SINUSITIS
     Route: 065

REACTIONS (3)
  - Pruritus [Recovered/Resolved]
  - Headache [Not Recovered/Not Resolved]
  - Sinus pain [Not Recovered/Not Resolved]
